FAERS Safety Report 4301153-6 (Version None)
Quarter: 2004Q1

REPORT INFORMATION
  Report Type: 
  Country: None (occurrence: None)
  Receive Date: 20040218
  Receipt Date: 20031124
  Transmission Date: 20041129
  Serious: No
  Sender: FDA-Public Use
  Company Number: 2003-11-1734

PATIENT
  Sex: Male

DRUGS (2)
  1. PEG-INTRON [Suspect]
     Indication: HEPATITIS C
     Dosage: 150 MCG VIAL SUBCUTANEOUS
     Route: 058
     Dates: start: 20030712, end: 20031001
  2. REBETOL [Suspect]
     Indication: HEPATITIS C
     Dosage: ORAL
     Route: 048
     Dates: start: 20030712, end: 20031001

REACTIONS (2)
  - ALOPECIA [None]
  - DRUG INEFFECTIVE [None]
